FAERS Safety Report 6212972-3 (Version None)
Quarter: 2009Q2

REPORT INFORMATION
  Report Type: 
  Country: None (occurrence: None)
  Receive Date: 20090602
  Receipt Date: 20090602
  Transmission Date: 20091009
  Serious: Yes (Hospitalization)
  Sender: FDA-Public Use
  Company Number: None

PATIENT
  Sex: Male
  Weight: 21.6 kg

DRUGS (4)
  1. CYTARABINE [Suspect]
     Dosage: 70 MG
     Route: 037
  2. DEXAMETHASONE [Suspect]
     Dosage: 27.5 MG
     Route: 048
  3. ONCASPAR [Suspect]
     Dosage: 2125 MU
  4. VINCRISTINE SULFATE [Suspect]
     Dosage: 1.3 MG

REACTIONS (4)
  - FAECAL INCONTINENCE [None]
  - REVERSIBLE POSTERIOR LEUKOENCEPHALOPATHY SYNDROME [None]
  - VASOGENIC CEREBRAL OEDEMA [None]
  - VOMITING [None]
